FAERS Safety Report 5505378-3 (Version None)
Quarter: 2007Q4

REPORT INFORMATION
  Report Type: 
  Country: None (occurrence: None)
  Receive Date: 20071102
  Receipt Date: 20071025
  Transmission Date: 20080405
  Serious: Yes (Disabling)
  Sender: FDA-Public Use
  Company Number: BE-ELI_LILLY_AND_COMPANY-BE200707004270

PATIENT
  Age: 55 Year
  Sex: Male
  Weight: 77 kg

DRUGS (4)
  1. GEMCITABINE HCL [Suspect]
     Indication: BRONCHIAL CARCINOMA
     Dosage: DAY 1 AND DAY 8
     Route: 042
     Dates: start: 20070405
  2. CISPLATIN [Concomitant]
     Indication: BRONCHIAL CARCINOMA
     Dosage: DAY 1 OF EVERY CYCLE
     Route: 042
  3. EMEND [Concomitant]
     Indication: VOMITING
     Dosage: UNK, UNKNOWN
     Route: 065
  4. SOLU-MEDROL [Concomitant]
     Dosage: UNK, UNKNOWN
     Route: 065

REACTIONS (1)
  - OPTIC ISCHAEMIC NEUROPATHY [None]
